FAERS Safety Report 9408487 (Version 1)
Quarter: 2013Q3

REPORT INFORMATION
  Report Type: Spontaneous
  Country: US (occurrence: US)
  Receive Date: 20130718
  Receipt Date: 20130718
  Transmission Date: 20140515
  Serious: Yes (Other)
  Sender: FDA-Public Use
  Company Number: CHPA2013US011337

PATIENT
  Age: 83 Year
  Sex: Female

DRUGS (1)
  1. PREVACID 24HR 15MG [Suspect]
     Indication: OESOPHAGITIS
     Dosage: 30 MG, QD
     Route: 048
     Dates: start: 201306

REACTIONS (6)
  - Gastric disorder [Not Recovered/Not Resolved]
  - Muscle spasms [Not Recovered/Not Resolved]
  - Diarrhoea [Not Recovered/Not Resolved]
  - Prescribed overdose [Unknown]
  - Off label use [Unknown]
  - Incorrect drug administration duration [Unknown]
